FAERS Safety Report 9055314 (Version 2)
Quarter: 2013Q1

REPORT INFORMATION
  Report Type: Spontaneous
  Country: IE (occurrence: IE)
  Receive Date: 20130206
  Receipt Date: 20130228
  Transmission Date: 20140127
  Serious: Yes (Other)
  Sender: FDA-Public Use
  Company Number: IE-ROCHE-1183591

PATIENT
  Sex: Female
  Weight: 93.4 kg

DRUGS (12)
  1. HERCEPTIN [Suspect]
     Indication: BREAST CANCER METASTATIC
     Route: 042
     Dates: start: 20110829, end: 20111101
  2. HERCEPTIN [Suspect]
     Dosage: 157-325 MG
     Route: 042
     Dates: start: 20110418, end: 20110822
  3. HERCEPTIN [Suspect]
     Dosage: 525-556 MG
     Route: 042
     Dates: start: 20100114, end: 20100902
  4. HERCEPTIN [Suspect]
     Dosage: 168-336 MG
     Route: 042
     Dates: start: 20090807, end: 20100107
  5. MYOCET [Concomitant]
     Indication: BREAST CANCER
     Route: 065
     Dates: start: 201209
  6. LAPATINIB [Concomitant]
     Indication: BREAST CANCER
     Route: 065
     Dates: start: 201209
  7. LAPATINIB [Concomitant]
     Route: 048
     Dates: start: 20111121, end: 20120807
  8. CAPECITABINE [Concomitant]
     Indication: BREAST CANCER
     Route: 048
     Dates: start: 20111121, end: 20120807
  9. PACLITAXEL [Concomitant]
     Indication: BREAST CANCER
     Route: 042
     Dates: start: 20110418, end: 20110822
  10. DOCETAXEL [Concomitant]
     Indication: BREAST CANCER
     Dosage: 135-140 MG
     Route: 042
     Dates: start: 20090807, end: 20091231
  11. CARBOPLATIN [Concomitant]
     Indication: BREAST CANCER
     Dosage: 840-890 MG
     Route: 042
     Dates: start: 20090807, end: 20091231
  12. TAMOXIFEN [Concomitant]
     Indication: BREAST CANCER
     Route: 048

REACTIONS (1)
  - Disease progression [Not Recovered/Not Resolved]
